FAERS Safety Report 7091033-8 (Version None)
Quarter: 2010Q4

REPORT INFORMATION
  Report Type: 
  Country: None (occurrence: None)
  Receive Date: 20101105
  Receipt Date: 20101105
  Transmission Date: 20110411
  Serious: Yes (Hospitalization)
  Sender: FDA-Public Use
  Company Number: None

PATIENT
  Sex: Female
  Weight: 57.8 kg

DRUGS (1)
  1. TEMOZOLOMIDE [Suspect]
     Dosage: 2400 MG
     Dates: end: 20101026

REACTIONS (4)
  - ASTHENIA [None]
  - CONFUSIONAL STATE [None]
  - HYPERSOMNIA [None]
  - SOMNOLENCE [None]
